FAERS Safety Report 4840052-8 (Version None)
Quarter: 2005Q4

REPORT INFORMATION
  Report Type: 
  Country: None (occurrence: None)
  Receive Date: 20051125
  Receipt Date: 20051116
  Transmission Date: 20060501
  Serious: Yes (Hospitalization)
  Sender: FDA-Public Use
  Company Number: 2005JP002221

PATIENT
  Age: 53 Year
  Sex: Male

DRUGS (2)
  1. PROGRAF [Suspect]
     Indication: MYASTHENIA GRAVIS
     Dosage: 3.00 MG , ORAL
     Route: 048
  2. PREDNISOLONE (OREDNISOLONE) [Concomitant]

REACTIONS (1)
  - ACUTE MYELOID LEUKAEMIA [None]
